FAERS Safety Report 5479954-0 (Version None)
Quarter: 2007Q4

REPORT INFORMATION
  Report Type: 
  Country: None (occurrence: None)
  Receive Date: 20071008
  Receipt Date: 20071002
  Transmission Date: 20080405
  Serious: Yes (Life-Threatening)
  Sender: FDA-Public Use
  Company Number: AT-GENENTECH-249013

PATIENT
  Sex: Male

DRUGS (1)
  1. RITUXAN [Suspect]
     Indication: POLYARTHRITIS
     Dosage: 500 MG, UNK
     Route: 042

REACTIONS (2)
  - PLEURAL EFFUSION [None]
  - PNEUMONIA [None]
